FAERS Safety Report 7459978-4 (Version None)
Quarter: 2011Q2

REPORT INFORMATION
  Report Type: 
  Country: None (occurrence: None)
  Receive Date: 20110505
  Receipt Date: 20110429
  Transmission Date: 20111010
  Serious: Yes (Hospitalization)
  Sender: FDA-Public Use
  Company Number: ES-ABBOTT-11P-144-0722359-00

PATIENT
  Age: 46 Year
  Sex: Female

DRUGS (1)
  1. DEPAKENE [Suspect]
     Indication: SUICIDE ATTEMPT
     Route: 048
     Dates: start: 20110307, end: 20110307

REACTIONS (4)
  - HYPOTENSION [None]
  - COGNITIVE DISORDER [None]
  - LEUKOPENIA [None]
  - SUICIDE ATTEMPT [None]
